FAERS Safety Report 17513993 (Version 1)
Quarter: 2020Q1

REPORT INFORMATION
  Report Type: Spontaneous
  Country: GB (occurrence: GB)
  Receive Date: 20200308
  Receipt Date: 20200308
  Transmission Date: 20200409
  Serious: Yes (Hospitalization)
  Sender: FDA-Public Use
  Company Number: GB-BRISTOL-MYERS SQUIBB COMPANY-BMS-2020-018254

PATIENT
  Age: 71 Year
  Sex: Male

DRUGS (3)
  1. AMOXICILLIN. [Interacting]
     Active Substance: AMOXICILLIN
     Indication: RESPIRATORY TRACT INFECTION
     Dosage: UNK
     Route: 065
     Dates: start: 20191023
  2. CLARITHROMYCIN. [Interacting]
     Active Substance: CLARITHROMYCIN
     Indication: RESPIRATORY TRACT INFECTION
     Route: 065
     Dates: start: 20191026
  3. WARFARIN SODIUM. [Suspect]
     Active Substance: WARFARIN SODIUM
     Indication: RESPIRATORY TRACT INFECTION
     Dosage: UNK
     Route: 065
     Dates: start: 20191026

REACTIONS (4)
  - Abdominal wall haematoma [Unknown]
  - International normalised ratio increased [Unknown]
  - Musculoskeletal chest pain [Unknown]
  - Drug interaction [Unknown]

NARRATIVE: CASE EVENT DATE: 20191101
